FAERS Safety Report 21843034 (Version 1)
Quarter: 2023Q1

REPORT INFORMATION
  Report Type: Spontaneous
  Country: US (occurrence: US)
  Receive Date: 20230110
  Receipt Date: 20230110
  Transmission Date: 20230417
  Serious: No
  Sender: FDA-Public Use
  Company Number: US-PERRIGO-22US014299

PATIENT
  Age: 5 Year
  Sex: Male
  Weight: 19.501 kg

DRUGS (1)
  1. PERMETHRIN [Suspect]
     Active Substance: PERMETHRIN
     Indication: Acarodermatitis
     Dosage: UNKNOWN, SINGLE
     Route: 061
     Dates: start: 20221025, end: 20221025

REACTIONS (3)
  - Rash [Unknown]
  - Product administered at inappropriate site [Unknown]
  - Off label use [Unknown]

NARRATIVE: CASE EVENT DATE: 20221025
